FAERS Safety Report 25285400 (Version 1)
Quarter: 2025Q2

REPORT INFORMATION
  Report Type: Spontaneous
  Country: US (occurrence: US)
  Receive Date: 20250509
  Receipt Date: 20250509
  Transmission Date: 20250716
  Serious: Yes (Hospitalization)
  Sender: ELI LILLY AND COMPANY
  Company Number: US-ELI_LILLY_AND_COMPANY-US202504025292

PATIENT
  Sex: Female

DRUGS (1)
  1. MOUNJARO [Suspect]
     Active Substance: TIRZEPATIDE
     Indication: Diabetes mellitus
     Route: 065
     Dates: start: 202504

REACTIONS (4)
  - Diarrhoea [Unknown]
  - Dehydration [Unknown]
  - Renal disorder [Unknown]
  - Nausea [Unknown]

NARRATIVE: CASE EVENT DATE: 20250401
